FAERS Safety Report 8179553-6 (Version None)
Quarter: 2012Q1

REPORT INFORMATION
  Report Type: 
  Country: None (occurrence: None)
  Receive Date: 20120302
  Receipt Date: 20120229
  Transmission Date: 20120608
  Serious: No
  Sender: FDA-Public Use
  Company Number: US-PFIZER INC-2012055831

PATIENT
  Sex: Female
  Weight: 79.365 kg

DRUGS (5)
  1. CHANTIX [Suspect]
     Indication: SMOKING CESSATION THERAPY
     Dosage: UNK
     Route: 048
  2. CHANTIX [Suspect]
     Dosage: UNK
     Route: 048
     Dates: start: 20120201
  3. BENADRYL [Concomitant]
     Indication: SINUS DISORDER
     Dosage: UNK
  4. CHANTIX [Suspect]
     Dosage: 0.5 MG, DAILY
     Route: 048
     Dates: start: 20120221, end: 20120201
  5. BENADRYL [Concomitant]
     Indication: SLEEP DISORDER

REACTIONS (3)
  - ABNORMAL DREAMS [None]
  - DIARRHOEA [None]
  - FLATULENCE [None]
